FAERS Safety Report 8511834-6 (Version None)
Quarter: 2012Q3

REPORT INFORMATION
  Report Type: 
  Country: None (occurrence: None)
  Receive Date: 20120716
  Receipt Date: 20120712
  Transmission Date: 20120928
  Serious: Yes (Life-Threatening, Hospitalization, Other)
  Sender: FDA-Public Use
  Company Number: FR-B.I. PHARMACEUTICALS,INC./RIDGEFIELD-2010-FF-00378FF

PATIENT
  Sex: Male
  Weight: 59 kg

DRUGS (10)
  1. ATACAND [Concomitant]
     Dosage: 16 MG
  2. PRADAXA [Suspect]
     Indication: ATRIAL FIBRILLATION
     Dosage: 150 MG
     Route: 048
     Dates: start: 20100421, end: 20100502
  3. FLECAINIDE ACETATE [Concomitant]
     Dosage: 50 MG
  4. ATORVASTATIN [Concomitant]
     Dosage: 10 MG
  5. AMITRIPTYLINE HCL [Concomitant]
     Dosage: 10 DROPS IN THE EVENING
     Route: 048
  6. OMEPRAZOLE [Concomitant]
  7. CORDARONE [Concomitant]
  8. ASPEGIC 1000 [Concomitant]
     Dosage: 100 MG
  9. ZOLPIDEM TARTRATE [Concomitant]
     Dosage: 1/2 IN THE EVENING
  10. LEXOMIL [Concomitant]
     Dosage: 1/4 ON DEMAND

REACTIONS (11)
  - COLITIS ISCHAEMIC [None]
  - INJECTION SITE HAEMORRHAGE [None]
  - PROTHROMBIN TIME RATIO DECREASED [None]
  - PERITONITIS [None]
  - INFUSION SITE HAEMORRHAGE [None]
  - SEPTIC SHOCK [None]
  - SHOCK HAEMORRHAGIC [None]
  - RENAL FAILURE [None]
  - OVERDOSE [None]
  - MULTI-ORGAN FAILURE [None]
  - PROTHROMBIN LEVEL DECREASED [None]
